FAERS Safety Report 7842493-3 (Version None)
Quarter: 2011Q4

REPORT INFORMATION
  Report Type: 
  Country: None (occurrence: None)
  Receive Date: 20111025
  Receipt Date: 20111018
  Transmission Date: 20120403
  Serious: Yes (Other)
  Sender: FDA-Public Use
  Company Number: PHHY2011CA92350

PATIENT
  Sex: Female

DRUGS (1)
  1. ZOLEDRONOC ACID [Suspect]
     Indication: OSTEOPOROSIS
     Dosage: UNK UKN, UNK
     Route: 042
     Dates: start: 20110201

REACTIONS (8)
  - MOVEMENT DISORDER [None]
  - INFLUENZA LIKE ILLNESS [None]
  - FATIGUE [None]
  - PARALYSIS [None]
  - NAUSEA [None]
  - HEADACHE [None]
  - SPEECH DISORDER [None]
  - ASTHENIA [None]
